FAERS Safety Report 8556724-8 (Version None)
Quarter: 2012Q3

REPORT INFORMATION
  Report Type: 
  Country: None (occurrence: None)
  Receive Date: 20120801
  Receipt Date: 20120726
  Transmission Date: 20120928
  Serious: Yes (Hospitalization)
  Sender: FDA-Public Use
  Company Number: JP-ASTELLAS-2012JP002456

PATIENT
  Sex: Female
  Weight: 35 kg

DRUGS (20)
  1. BENZALIN                           /00036201/ [Concomitant]
     Indication: BIPOLAR I DISORDER
     Dosage: 5 MG, UID/QD
     Route: 048
     Dates: start: 20120212, end: 20120229
  2. MAGMITT [Concomitant]
     Indication: CONSTIPATION
     Dosage: 990 MG, UID/QD
     Route: 048
     Dates: start: 20120212, end: 20120303
  3. BENZALIN                           /00036201/ [Concomitant]
     Indication: INSOMNIA
     Dosage: 5 MG, UID/QD
     Route: 048
     Dates: start: 20120310, end: 20120314
  4. FUNGUARD [Suspect]
     Indication: FUNGAEMIA
     Dosage: 75 MG, UID/QD
     Route: 041
     Dates: start: 20120316, end: 20120324
  5. SOLDACTONE [Concomitant]
     Indication: PLEURAL EFFUSION
     Dosage: 200 MG, UID/QD
     Route: 042
     Dates: start: 20120308, end: 20120324
  6. NEOPAREN 2 [Concomitant]
     Indication: NUTRITIONAL SUPPORT
     Dosage: 1.5 L, UID/QD
     Route: 041
     Dates: start: 20120313, end: 20120316
  7. NEOPAREN 2 [Concomitant]
     Dosage: 1 L, UID/QD
     Route: 041
     Dates: start: 20120317, end: 20120324
  8. MAGMITT [Concomitant]
     Dosage: 990 MG, UID/QD
     Route: 048
     Dates: start: 20120310, end: 20120314
  9. SOLDACTONE [Concomitant]
     Indication: ASCITES
  10. CEFTRIAXONE [Concomitant]
     Indication: URINARY TRACT INFECTION
  11. TPN ELECTROLYTES IN PLASTIC CONTAINER [Concomitant]
     Indication: MALNUTRITION
     Dosage: 500 ML, UID/QD
     Route: 041
     Dates: start: 20120229, end: 20120310
  12. KLARICID                           /00984601/ [Concomitant]
     Indication: BRONCHITIS CHRONIC
     Dosage: 200 MG, BID
     Route: 048
     Dates: start: 20120219, end: 20120302
  13. RISPERDAL [Concomitant]
     Indication: BIPOLAR I DISORDER
     Dosage: 1 MG, UID/QD
     Route: 048
     Dates: start: 20120212, end: 20120229
  14. ASPARA K [Concomitant]
     Indication: HYPOKALAEMIA
     Dosage: 1.8 G, TID
     Route: 048
     Dates: start: 20120229, end: 20120302
  15. RISPERDAL [Concomitant]
     Dosage: 1 MG, UID/QD
     Route: 048
     Dates: start: 20120310, end: 20120314
  16. HIRNAMIN                           /00038601/ [Concomitant]
     Indication: BIPOLAR I DISORDER
     Dosage: 5 MG, UID/QD
     Route: 048
     Dates: start: 20120212, end: 20120303
  17. HIRNAMIN                           /00038601/ [Concomitant]
     Dosage: 5 MG, UID/QD
     Route: 048
     Dates: start: 20120310, end: 20120314
  18. PICILLIBACTA [Concomitant]
     Indication: PNEUMONIA
     Dosage: 3 G, BID
     Route: 041
     Dates: start: 20120303, end: 20120306
  19. CEFTRIAXONE [Concomitant]
     Indication: PANCREATITIS
     Dosage: 1 G, UID/QD
     Route: 041
     Dates: start: 20120313, end: 20120316
  20. NEOPAREN 1 [Concomitant]
     Indication: NUTRITIONAL SUPPORT
     Dosage: 1.5 L, UID/QD
     Route: 041
     Dates: start: 20120311, end: 20120312

REACTIONS (1)
  - PLATELET COUNT DECREASED [None]
